FAERS Safety Report 7402384-9 (Version None)
Quarter: 2011Q2

REPORT INFORMATION
  Report Type: 
  Country: None (occurrence: None)
  Receive Date: 20110408
  Receipt Date: 20110328
  Transmission Date: 20111010
  Serious: Yes (Death)
  Sender: FDA-Public Use
  Company Number: CA-BRISTOL-MYERS SQUIBB COMPANY-15643505

PATIENT
  Age: 40 Year
  Sex: Female

DRUGS (4)
  1. CONCERTA [Suspect]
  2. ABILIFY [Suspect]
     Dates: start: 20110222
  3. PROZAC [Suspect]
  4. TOPAMAX [Suspect]

REACTIONS (1)
  - CARDIAC ARREST [None]
